FAERS Safety Report 4469465-3 (Version None)
Quarter: 2004Q4

REPORT INFORMATION
  Report Type: 
  Country: None (occurrence: None)
  Receive Date: 20041005
  Receipt Date: 20040924
  Transmission Date: 20050328
  Serious: Yes (Hospitalization)
  Sender: FDA-Public Use
  Company Number: 200410477BFR

PATIENT
  Age: 83 Year
  Sex: Male
  Weight: 61 kg

DRUGS (10)
  1. CIPROFLOXACIN [Suspect]
     Indication: STAPHYLOCOCCAL INFECTION
     Dosage: 1000 MG, TOTAL DAILY, ORAL
     Route: 048
     Dates: start: 20030530, end: 20030606
  2. CIPROFLOXACIN [Suspect]
     Indication: URINARY TRACT INFECTION
     Dosage: 1000 MG, TOTAL DAILY, ORAL
     Route: 048
     Dates: start: 20030530, end: 20030606
  3. BISOPROLOL FUMARATE [Concomitant]
  4. LASILIX [Concomitant]
  5. PROSCAR [Concomitant]
  6. IKOREL [Concomitant]
  7. TAHOR [Concomitant]
  8. XATRAL [Concomitant]
  9. EULEXIN [Concomitant]
  10. UNICORDIUM [Concomitant]

REACTIONS (2)
  - PROTEINURIA [None]
  - RENAL FAILURE ACUTE [None]
